FAERS Safety Report 8518612-2 (Version None)
Quarter: 2012Q3

REPORT INFORMATION
  Report Type: 
  Country: None (occurrence: None)
  Receive Date: 20120718
  Receipt Date: 20110805
  Transmission Date: 20120928
  Serious: Yes (Hospitalization, Other)
  Sender: FDA-Public Use
  Company Number: US-BRISTOL-MYERS SQUIBB COMPANY-15744808

PATIENT
  Age: 77 Year
  Sex: Female

DRUGS (6)
  1. PLAVIX [Concomitant]
  2. COUMADIN [Suspect]
     Indication: ATRIAL FIBRILLATION
     Dosage: 13 YEARS,7MG ONE DAILY FOR FIVE DAYS AND 10 MG ONCE DAILY FOR TWO DAYS
  3. DIGOXIN [Concomitant]
  4. ASPIRIN [Concomitant]
  5. BLOOD PRESSURE PILL [Concomitant]
  6. SOTALOL HCL [Concomitant]

REACTIONS (4)
  - INTERNATIONAL NORMALISED RATIO FLUCTUATION [None]
  - HAEMATOMA [None]
  - SKIN EXFOLIATION [None]
  - ECCHYMOSIS [None]
